FAERS Safety Report 25581698 (Version 1)
Quarter: 2025Q3

REPORT INFORMATION
  Report Type: Spontaneous
  Country: EU (occurrence: EU)
  Receive Date: 20250719
  Receipt Date: 20250719
  Transmission Date: 20251020
  Serious: Yes (Hospitalization)
  Sender: AUROBINDO
  Company Number: EU-LRB-00527016

PATIENT
  Sex: Female

DRUGS (1)
  1. ACETAMINOPHEN [Suspect]
     Active Substance: ACETAMINOPHEN
     Indication: Pyrexia
     Dosage: 120 MILLIGRAM, 3 TIMES A DAY
     Route: 065
     Dates: start: 20210428, end: 20210429

REACTIONS (1)
  - Febrile convulsion [Recovering/Resolving]

NARRATIVE: CASE EVENT DATE: 20210428
